FAERS Safety Report 14177524 (Version 1)
Quarter: 2017Q4

REPORT INFORMATION
  Report Type: Spontaneous
  Country: GB (occurrence: GB)
  Receive Date: 20171110
  Receipt Date: 20171110
  Transmission Date: 20180321
  Serious: Yes (Other)
  Sender: FDA-Public Use
  Company Number: GB-TORRENT-00015802

PATIENT
  Age: 80 Year
  Sex: Male

DRUGS (1)
  1. SILDENAFIL CITRATE. [Suspect]
     Active Substance: SILDENAFIL CITRATE
     Indication: PRODUCT USED FOR UNKNOWN INDICATION
     Dosage: 100 MG, UNK
     Dates: start: 2015

REACTIONS (2)
  - Atrial fibrillation [Unknown]
  - Heart rate abnormal [Unknown]
